FAERS Safety Report 9018605 (Version 1)
Quarter: 2013Q1

REPORT INFORMATION
  Report Type: Spontaneous
  Country: US (occurrence: US)
  Receive Date: 20130118
  Receipt Date: 20130118
  Transmission Date: 20140127
  Serious: Yes (Other)
  Sender: FDA-Public Use
  Company Number: US-JNJFOC-20130105411

PATIENT
  Sex: Male
  Weight: 58.97 kg

DRUGS (5)
  1. SPORANOX [Suspect]
     Indication: ASPERGILLUS INFECTION
     Route: 065
  2. AMPHOTERICIN B [Suspect]
     Indication: ASPERGILLUS INFECTION
     Route: 065
  3. LIPOSOMAL [Suspect]
     Indication: ASPERGILLUS INFECTION
     Route: 065
  4. INSULIN [Concomitant]
     Indication: TYPE 1 DIABETES MELLITUS
     Route: 065
  5. LANTUS [Concomitant]
     Indication: TYPE 1 DIABETES MELLITUS
     Route: 065

REACTIONS (9)
  - Haemoptysis [Recovered/Resolved]
  - Anaphylactic reaction [Unknown]
  - Multi-organ failure [Unknown]
  - Hepatic enzyme increased [Unknown]
  - Oedema [Recovered/Resolved]
  - Arthralgia [Recovered/Resolved]
  - Myalgia [Recovered/Resolved]
  - Local swelling [None]
  - Renal impairment [None]
